FAERS Safety Report 20752662 (Version 1)
Quarter: 2022Q2

REPORT INFORMATION
  Report Type: Spontaneous
  Country: US (occurrence: None)
  Receive Date: 20220426
  Receipt Date: 20220426
  Transmission Date: 20220720
  Serious: No
  Sender: FDA-Public Use
  Company Number: US-ROCHE-2992821

PATIENT
  Sex: Male

DRUGS (1)
  1. ESBRIET [Suspect]
     Active Substance: PIRFENIDONE
     Indication: Interstitial lung disease
     Dosage: TAKE 1 TABLET BY MOUTH 3 TIMES DAILY FOR ONE WEEK, THEN 2 TABLET 3 TIMES DAILY FOR 1 WEEK THEN 3 TAB
     Route: 048
     Dates: start: 20211222

REACTIONS (2)
  - Product dose omission in error [Unknown]
  - No adverse event [Unknown]
